FAERS Safety Report 21905357 (Version 3)
Quarter: 2023Q1

REPORT INFORMATION
  Report Type: Spontaneous
  Country: US (occurrence: US)
  Receive Date: 20230124
  Receipt Date: 20230309
  Transmission Date: 20230417
  Serious: No
  Sender: FDA-Public Use
  Company Number: US-BRISTOL-MYERS SQUIBB COMPANY-2023-011134

PATIENT
  Age: 63 Year
  Sex: Female
  Weight: 82.8 kg

DRUGS (1)
  1. REVLIMID [Suspect]
     Active Substance: LENALIDOMIDE
     Indication: Plasma cell myeloma
     Dosage: DAYS 1-21 Q 28 DAYS?FREQUENCY: DAILY FOR 2 WEEKS ON THEN 2 WEEKS OFF Q28 DAYS.
     Route: 048
     Dates: start: 20221212

REACTIONS (6)
  - Full blood count abnormal [Unknown]
  - White blood cell count decreased [Recovered/Resolved]
  - Red blood cell count decreased [Recovered/Resolved]
  - Off label use [Unknown]
  - Arthralgia [Unknown]
  - Laboratory test abnormal [Unknown]
